FAERS Safety Report 16823301 (Version 1)
Quarter: 2019Q3

REPORT INFORMATION
  Report Type: Spontaneous
  Country: ES (occurrence: ES)
  Receive Date: 20190918
  Receipt Date: 20190918
  Transmission Date: 20191005
  Serious: Yes (Other)
  Sender: FDA-Public Use
  Company Number: ES-ALLERGAN-1937757US

PATIENT
  Sex: Male

DRUGS (3)
  1. FLUOROMETHOLONE UNK [Suspect]
     Active Substance: FLUOROMETHOLONE
     Indication: VERNAL KERATOCONJUNCTIVITIS
  2. ERYTHROMYCIN BASE [Concomitant]
     Active Substance: ERYTHROMYCIN
  3. CYCLOSPORINE 0.5% [Concomitant]
     Dosage: UNK UNK, BID

REACTIONS (2)
  - Drug ineffective [Unknown]
  - Vernal keratoconjunctivitis [Recovered/Resolved]
